FAERS Safety Report 5674906-X (Version None)
Quarter: 2008Q1

REPORT INFORMATION
  Report Type: 
  Country: None (occurrence: None)
  Receive Date: 20080320
  Receipt Date: 20080311
  Transmission Date: 20080703
  Serious: Yes (Hospitalization)
  Sender: FDA-Public Use
  Company Number: IT-ROCHE-552438

PATIENT
  Age: 11 Year
  Sex: Male

DRUGS (1)
  1. ROCEPHIN [Suspect]
     Indication: TONSILLITIS
     Dosage: FORM: VIAL
     Route: 030
     Dates: start: 20080226, end: 20080226

REACTIONS (7)
  - AGITATION [None]
  - DEPRESSED LEVEL OF CONSCIOUSNESS [None]
  - DYSPNOEA [None]
  - ERYTHEMA [None]
  - HYPOTENSION [None]
  - PRURITUS [None]
  - TACHYCARDIA [None]
